FAERS Safety Report 8419854-7 (Version None)
Quarter: 2012Q2

REPORT INFORMATION
  Report Type: 
  Country: None (occurrence: None)
  Receive Date: 20120607
  Receipt Date: 20120423
  Transmission Date: 20120825
  Serious: Yes (Death, Hospitalization)
  Sender: FDA-Public Use
  Company Number: PHHY2011KR104653

PATIENT
  Sex: Male
  Weight: 17 kg

DRUGS (1)
  1. EXJADE [Suspect]
     Indication: IRON OVERLOAD
     Dosage: 20 MG/KG, UNK
     Route: 048
     Dates: start: 20080917, end: 20090708

REACTIONS (3)
  - PYREXIA [None]
  - DEATH [None]
  - SERUM FERRITIN ABNORMAL [None]
